FAERS Safety Report 18784604 (Version 2)
Quarter: 2021Q1

REPORT INFORMATION
  Report Type: Spontaneous
  Country: CN (occurrence: CN)
  Receive Date: 20210125
  Receipt Date: 20210126
  Transmission Date: 20210419
  Serious: No
  Sender: FDA-Public Use
  Company Number: CN-TAKEDA-2021TUS002550

PATIENT
  Age: 80 Year
  Sex: Female

DRUGS (1)
  1. HUMAN ALBUMIN [Suspect]
     Active Substance: ALBUMIN HUMAN
     Indication: HYPOPROTEINAEMIA
     Dosage: 20 GRAM, QD
     Route: 041
     Dates: start: 20201218, end: 20201218

REACTIONS (2)
  - Chest discomfort [Recovered/Resolved]
  - Infusion related hypersensitivity reaction [Unknown]

NARRATIVE: CASE EVENT DATE: 20201218
